FAERS Safety Report 6882694-4 (Version None)
Quarter: 2010Q3

REPORT INFORMATION
  Report Type: 
  Country: None (occurrence: None)
  Receive Date: 20100729
  Receipt Date: 20100716
  Transmission Date: 20110219
  Serious: No
  Sender: FDA-Public Use
  Company Number: US-ELI_LILLY_AND_COMPANY-US201006001089

PATIENT
  Age: 58 Year
  Sex: Female
  Weight: 61.224 kg

DRUGS (3)
  1. FORTEO [Suspect]
     Indication: OSTEOPOROSIS
     Dosage: UNK, DAILY (1/D)
     Route: 058
     Dates: start: 20090801
  2. CALCIUM [Concomitant]
     Dosage: 1000 MG, DAILY (1/D)
  3. VITAMIN D [Concomitant]
     Dosage: 2000 IU, DAILY (1/D)

REACTIONS (2)
  - CHONDROCALCINOSIS [None]
  - HYPERCALCAEMIA [None]
